FAERS Safety Report 13022238 (Version 4)
Quarter: 2018Q4

REPORT INFORMATION
  Report Type: Spontaneous
  Country: US (occurrence: US)
  Receive Date: 20161213
  Receipt Date: 20181121
  Transmission Date: 20190204
  Serious: Yes (Other)
  Sender: FDA-Public Use
  Company Number: US-PFIZER INC-2016569236

PATIENT
  Age: 75 Year
  Sex: Female

DRUGS (1)
  1. XELJANZ XR [Suspect]
     Active Substance: TOFACITINIB CITRATE
     Indication: RHEUMATOID ARTHRITIS
     Dosage: 11 MG, UNK

REACTIONS (8)
  - Haemorrhage [Recovering/Resolving]
  - Limb injury [Unknown]
  - Impaired healing [Unknown]
  - Peripheral swelling [Recovered/Resolved]
  - Ear infection [Recovering/Resolving]
  - Urinary tract infection [Unknown]
  - Peripheral vascular disorder [Unknown]
  - Back disorder [Unknown]
